FAERS Safety Report 17290981 (Version 3)
Quarter: 2021Q2

REPORT INFORMATION
  Report Type: Report from Study
  Country: US (occurrence: US)
  Receive Date: 20200121
  Receipt Date: 20210514
  Transmission Date: 20210716
  Serious: Yes (Death, Other)
  Sender: FDA-Public Use
  Company Number: US-SHIRE-US202001797

PATIENT
  Age: 59 Year
  Sex: Male

DRUGS (8)
  1. TEDUGLUTIDE [Suspect]
     Active Substance: TEDUGLUTIDE
     Indication: PRODUCT USED FOR UNKNOWN INDICATION
     Dosage: 3.4 MILLIGRAM, QD
     Route: 058
     Dates: start: 20190204
  2. TEDUGLUTIDE [Suspect]
     Active Substance: TEDUGLUTIDE
     Dosage: 0.3400 UNKNOWN UNIT
     Route: 058
     Dates: start: 20151103
  3. TEDUGLUTIDE [Suspect]
     Active Substance: TEDUGLUTIDE
     Dosage: 0.3400 UNKNOWN UNIT
     Route: 058
     Dates: start: 20151103
  4. TEDUGLUTIDE [Suspect]
     Active Substance: TEDUGLUTIDE
     Dosage: 0.3400 UNKNOWN UNIT
     Route: 058
     Dates: start: 20151103
  5. TEDUGLUTIDE [Suspect]
     Active Substance: TEDUGLUTIDE
     Indication: PRODUCT USED FOR UNKNOWN INDICATION
     Dosage: 3.4 MILLIGRAM, QD
     Route: 058
     Dates: start: 20190204
  6. TEDUGLUTIDE [Suspect]
     Active Substance: TEDUGLUTIDE
     Indication: PRODUCT USED FOR UNKNOWN INDICATION
     Dosage: 3.4 MILLIGRAM, QD
     Route: 058
     Dates: start: 20190204
  7. TEDUGLUTIDE [Suspect]
     Active Substance: TEDUGLUTIDE
     Dosage: 0.3400 UNKNOWN UNIT
     Route: 058
     Dates: start: 20151103
  8. TEDUGLUTIDE [Suspect]
     Active Substance: TEDUGLUTIDE
     Indication: PRODUCT USED FOR UNKNOWN INDICATION
     Dosage: 3.4 MILLIGRAM, QD
     Route: 058
     Dates: start: 20190204

REACTIONS (4)
  - COVID-19 [Unknown]
  - Death [Fatal]
  - Influenza [Recovered/Resolved]
  - Product dose omission issue [Unknown]

NARRATIVE: CASE EVENT DATE: 20210502
